FAERS Safety Report 20885190 (Version 1)
Quarter: 2022Q2

REPORT INFORMATION
  Report Type: Spontaneous
  Country: US (occurrence: US)
  Receive Date: 20220527
  Receipt Date: 20220527
  Transmission Date: 20220721
  Serious: No
  Sender: FDA-Public Use
  Company Number: US-BRISTOL-MYERS SQUIBB COMPANY-2022-046833

PATIENT
  Age: 57 Year
  Sex: Female
  Weight: 80.74 kg

DRUGS (1)
  1. REVLIMID [Suspect]
     Active Substance: LENALIDOMIDE
     Indication: Plasma cell myeloma
     Dosage: EVERY OTHER DAY,DAYS 1-28
     Route: 048
     Dates: start: 20180228

REACTIONS (2)
  - Respiratory tract infection [Recovered/Resolved]
  - Sinusitis [Unknown]
